FAERS Safety Report 4351155-9 (Version None)
Quarter: 2004Q2

REPORT INFORMATION
  Report Type: 
  Country: None (occurrence: None)
  Receive Date: 20040428
  Receipt Date: 20030701
  Transmission Date: 20050107
  Serious: Yes (Other)
  Sender: FDA-Public Use
  Company Number: NSADSS2002005997

PATIENT
  Age: 29 Year
  Sex: Male
  Weight: 68.0396 kg

DRUGS (2)
  1. ULTRAM [Suspect]
     Indication: PAIN
     Dosage: 3 IN 1 DAY, ORAL
     Route: 048
     Dates: start: 20010722, end: 20020214
  2. PROZAC [Suspect]
     Indication: DRUG USE FOR UNKNOWN INDICATION
     Dosage: 40 MG, 1 IN 1 DAY
     Dates: start: 20000726

REACTIONS (1)
  - CONVULSION [None]
